FAERS Safety Report 11630743 (Version 1)
Quarter: 2015Q4

REPORT INFORMATION
  Report Type: Spontaneous
  Country: US (occurrence: US)
  Receive Date: 20151014
  Receipt Date: 20151014
  Transmission Date: 20160304
  Serious: No
  Sender: FDA-Public Use
  Company Number: US-BAYER-2015-439212

PATIENT
  Age: 14 Year
  Sex: Male
  Weight: 46.26 kg

DRUGS (2)
  1. ABILIFY [Concomitant]
     Active Substance: ARIPIPRAZOLE
     Dosage: 5 MG, UNK
  2. CLARITIN [Suspect]
     Active Substance: LORATADINE
     Dosage: 1 DF, UNK

REACTIONS (2)
  - Pain [None]
  - Head discomfort [None]
